FAERS Safety Report 23665088 (Version 1)
Quarter: 2024Q1

REPORT INFORMATION
  Report Type: Spontaneous
  Country: US (occurrence: US)
  Receive Date: 20240322
  Receipt Date: 20240322
  Transmission Date: 20240409
  Serious: No
  Sender: FDA-Public Use
  Company Number: US-PFIZER INC-202400069640

PATIENT
  Age: 76 Year
  Sex: Female

DRUGS (1)
  1. PAXLOVID [Suspect]
     Active Substance: NIRMATRELVIR\RITONAVIR
     Indication: COVID-19 treatment
     Dosage: UNK
     Dates: start: 20240317

REACTIONS (5)
  - Gait disturbance [Unknown]
  - Plantar fasciitis [Unknown]
  - Limb discomfort [Unknown]
  - Abdominal discomfort [Unknown]
  - Diarrhoea [Unknown]
